FAERS Safety Report 7194578-5 (Version None)
Quarter: 2010Q4

REPORT INFORMATION
  Report Type: 
  Country: None (occurrence: None)
  Receive Date: 20101223
  Receipt Date: 20100915
  Transmission Date: 20110411
  Serious: No
  Sender: FDA-Public Use
  Company Number: US-AMGEN-KDL438545

PATIENT

DRUGS (5)
  1. ENBREL [Suspect]
     Indication: PRODUCT USED FOR UNKNOWN INDICATION
  2. ADALIMUMAB [Concomitant]
     Dosage: 40 MG, Q2WK
     Dates: start: 20090101, end: 20100704
  3. ADALIMUMAB [Concomitant]
     Dosage: 40 MG, QWK
  4. KAPSOVIT [Concomitant]
  5. DRONABINOL [Concomitant]

REACTIONS (14)
  - AMNESIA [None]
  - ANXIETY [None]
  - ARTHRALGIA [None]
  - CONFUSIONAL STATE [None]
  - DRUG HYPERSENSITIVITY [None]
  - DRUG INEFFECTIVE FOR UNAPPROVED INDICATION [None]
  - EAR PAIN [None]
  - EMOTIONAL DISORDER [None]
  - INSOMNIA [None]
  - MENTAL DISORDER [None]
  - MUSCLE ATROPHY [None]
  - MUSCULAR WEAKNESS [None]
  - PSYCHOMOTOR HYPERACTIVITY [None]
  - WEIGHT DECREASED [None]
